FAERS Safety Report 19268384 (Version 1)
Quarter: 2021Q2

REPORT INFORMATION
  Report Type: Spontaneous
  Country: US (occurrence: US)
  Receive Date: 20210517
  Receipt Date: 20210517
  Transmission Date: 20210717
  Serious: Yes (Hospitalization, Disabling)
  Sender: FDA-Public Use
  Company Number: None

PATIENT
  Age: 59 Year
  Sex: Female
  Weight: 56.25 kg

DRUGS (5)
  1. MELATONIN [Concomitant]
     Active Substance: MELATONIN
  2. DUPIXENT [Concomitant]
     Active Substance: DUPILUMAB
  3. BETAMETHASONE. [Suspect]
     Active Substance: BETAMETHASONE
     Indication: PSORIASIS
     Route: 061
     Dates: start: 20160601, end: 20190101
  4. LEVOCETERIZINE [Concomitant]
  5. TRIAMCINOLONE [Suspect]
     Active Substance: TRIAMCINOLONE
     Indication: PSORIASIS
     Route: 061
     Dates: start: 20160601, end: 20190101

REACTIONS (18)
  - Myalgia [None]
  - Skin exfoliation [None]
  - Impaired quality of life [None]
  - Chills [None]
  - Weight decreased [None]
  - Peripheral swelling [None]
  - Skin burning sensation [None]
  - Food allergy [None]
  - Rash papular [None]
  - Skin weeping [None]
  - Rash erythematous [None]
  - Urticaria [None]
  - Steroid withdrawal syndrome [None]
  - Suicide attempt [None]
  - Scab [None]
  - Papule [None]
  - Psychotic disorder [None]
  - Flushing [None]

NARRATIVE: CASE EVENT DATE: 20190101
